FAERS Safety Report 8635195 (Version 2)
Quarter: 2013Q3

REPORT INFORMATION
  Report Type: Spontaneous
  Country: FR (occurrence: FR)
  Receive Date: 20120626
  Receipt Date: 20130919
  Transmission Date: 20140515
  Serious: Yes (Hospitalization, Other)
  Sender: FDA-Public Use
  Company Number: FR-ACTELION-A-CH2012-66533

PATIENT
  Age: 53 Year
  Sex: Female

DRUGS (5)
  1. TRACLEER [Suspect]
     Indication: SKIN ULCER
     Dosage: 125 MG, BID
     Route: 048
     Dates: end: 20120521
  2. TRACLEER [Suspect]
     Dosage: 62.5 MG, BID
     Route: 048
     Dates: start: 20110421
  3. TRACLEER [Suspect]
     Dosage: UNK
     Route: 048
     Dates: end: 2013
  4. BI-PROFENID [Suspect]
     Dosage: UNK
     Dates: start: 201203, end: 201205
  5. ENDOXAN [Concomitant]

REACTIONS (6)
  - Hepatocellular injury [Recovered/Resolved]
  - Aspartate aminotransferase increased [Recovered/Resolved]
  - Alanine aminotransferase increased [Recovered/Resolved]
  - Pyrexia [Recovered/Resolved]
  - C-reactive protein increased [Unknown]
  - Viral infection [Recovering/Resolving]
